FAERS Safety Report 7907058-3 (Version None)
Quarter: 2011Q4

REPORT INFORMATION
  Report Type: 
  Country: None (occurrence: None)
  Receive Date: 20111110
  Receipt Date: 20111103
  Transmission Date: 20120403
  Serious: Yes (Hospitalization)
  Sender: FDA-Public Use
  Company Number: US-TEVA-307750USA

PATIENT
  Age: 22 Year
  Sex: Female

DRUGS (15)
  1. MERCAPTOPURINE [Suspect]
     Indication: LYMPHOCYTIC LEUKAEMIA
     Dosage: 2475 MG TOTAL DOSE
     Route: 048
     Dates: start: 20100528
  2. DAUNORUBICIN HYDROCHLORIDE [Suspect]
     Indication: LYMPHOCYTIC LEUKAEMIA
     Route: 041
  3. ASPARAGINASE [Suspect]
     Indication: LYMPHOCYTIC LEUKAEMIA
     Route: 030
  4. METHOTREXATE [Suspect]
     Indication: LYMPHOCYTIC LEUKAEMIA
     Dosage: 8127.5 MG TOTAL
     Route: 048
     Dates: start: 20100528
  5. CYCLOPHOSPHAMIDE [Suspect]
     Indication: LYMPHOCYTIC LEUKAEMIA
     Dosage: 2400 MG TOTAL
     Route: 041
     Dates: start: 20100528
  6. CYTARABINE [Suspect]
     Indication: LYMPHOCYTIC LEUKAEMIA
  7. DEXAMETHASONE [Suspect]
     Indication: LYMPHOCYTIC LEUKAEMIA
     Route: 048
  8. PREDNISONE TAB [Suspect]
     Indication: LYMPHOCYTIC LEUKAEMIA
     Dosage: 600 MG
     Route: 048
  9. IFOSFAMIDE [Suspect]
     Indication: LYMPHOCYTIC LEUKAEMIA
     Route: 041
  10. ETOPOSIDE [Suspect]
     Indication: LYMPHOCYTIC LEUKAEMIA
     Dosage: 800 MG TOTAL
     Route: 041
     Dates: start: 20110528
  11. HYDROCORTISONE [Suspect]
     Indication: LYMPHOCYTIC LEUKAEMIA
     Dates: start: 20100528
  12. METRONIDAZOLE [Suspect]
     Indication: LYMPHOCYTIC LEUKAEMIA
  13. VINCRISTINE [Suspect]
     Indication: LYMPHOCYTIC LEUKAEMIA
     Route: 041
  14. PEGASPARGASE [Suspect]
     Indication: LYMPHOCYTIC LEUKAEMIA
     Route: 030
  15. DASATINIB [Suspect]
     Indication: LYMPHOCYTIC LEUKAEMIA
     Dosage: 1400 MG
     Route: 048
     Dates: start: 20100528

REACTIONS (6)
  - NEUTROPHIL COUNT DECREASED [None]
  - ENTEROCOLITIS INFECTIOUS [None]
  - HYPERTENSION [None]
  - WHITE BLOOD CELL COUNT DECREASED [None]
  - FLUID RETENTION [None]
  - HEADACHE [None]
